FAERS Safety Report 10751367 (Version 1)
Quarter: 2015Q1

REPORT INFORMATION
  Report Type: Spontaneous
  Country: IN (occurrence: None)
  Receive Date: 20150128
  Receipt Date: 20150128
  Transmission Date: 20150721
  Serious: Yes (Death)
  Sender: FDA-Public Use
  Company Number: IPC201501-000017

PATIENT
  Age: 14 Year
  Sex: Female
  Weight: 25 kg

DRUGS (7)
  1. FENTANYL. [Concomitant]
     Active Substance: FENTANYL
  2. PROPRANOLOL HYDROCHLORIDE (PROPRANOLOL HYDROCHLORIDE) (PROPRANOLOL HYDROCHLORIDE) [Suspect]
     Active Substance: PROPRANOLOL HYDROCHLORIDE
     Route: 048
  3. SUCCINYLCHOLINE [Suspect]
     Active Substance: SUCCINYLCHOLINE
     Indication: INDUCTION OF ANAESTHESIA
  4. NITROUS OXIDE. [Concomitant]
     Active Substance: NITROUS OXIDE
  5. OXYGEN. [Concomitant]
     Active Substance: OXYGEN
  6. ISOFLURANE. [Concomitant]
     Active Substance: ISOFLURANE
  7. THIOPENTONE SODIUM (THIOPENTONE) [Concomitant]

REACTIONS (5)
  - Drug interaction [None]
  - Bradycardia [None]
  - Joint stiffness [None]
  - Cardiac arrest [None]
  - Hyperkalaemia [None]
